FAERS Safety Report 9528371 (Version 1)
Quarter: 2013Q3

REPORT INFORMATION
  Report Type: Spontaneous
  Country: DE (occurrence: None)
  Receive Date: 20130913
  Receipt Date: 20130913
  Transmission Date: 20140515
  Serious: Yes (Hospitalization)
  Sender: FDA-Public Use
  Company Number: DE-012886

PATIENT
  Age: 56 Year
  Sex: Female

DRUGS (2)
  1. PICOPREP [Suspect]
     Indication: BOWEL PREPARATION
     Dosage: I SACHET DAILY
     Route: 048
     Dates: start: 20130828, end: 20130828
  2. L-THYROXIN [Concomitant]

REACTIONS (5)
  - Loss of consciousness [None]
  - Dizziness [None]
  - Nausea [None]
  - Wound [None]
  - Syncope [None]
